FAERS Safety Report 5778803-0 (Version None)
Quarter: 2008Q2

REPORT INFORMATION
  Report Type: 
  Country: None (occurrence: None)
  Receive Date: 20080619
  Receipt Date: 20080610
  Transmission Date: 20081010
  Serious: Yes (Other)
  Sender: FDA-Public Use
  Company Number: PHHY2008BR10868

PATIENT
  Age: 65 Year
  Sex: Female

DRUGS (2)
  1. GALVUS MET [Suspect]
     Indication: DIABETES MELLITUS
     Dosage: UNK
     Route: 048
     Dates: end: 20080608
  2. GLIMECENIDA [Concomitant]

REACTIONS (3)
  - CHILLS [None]
  - HYPERHIDROSIS [None]
  - HYPOGLYCAEMIA [None]
